FAERS Safety Report 8273962-2 (Version None)
Quarter: 2012Q2

REPORT INFORMATION
  Report Type: 
  Country: None (occurrence: None)
  Receive Date: 20120411
  Receipt Date: 20120402
  Transmission Date: 20120825
  Serious: Yes (Other)
  Sender: FDA-Public Use
  Company Number: CA-FRI-1000029695

PATIENT
  Age: 37 Year
  Sex: Male

DRUGS (10)
  1. DILTIAZEM HCL [Concomitant]
  2. HYDROXYZINE [Concomitant]
  3. PREVACID [Concomitant]
  4. RAMIPRIL [Concomitant]
  5. CELEXA [Suspect]
     Dosage: 20 MG
     Route: 048
  6. DILANTIN [Suspect]
     Dosage: 500 MG
     Route: 048
  7. ENOXAPARIN [Concomitant]
  8. METOPROLOL TARTRATE [Concomitant]
  9. DILANTIN [Suspect]
     Dosage: 600 MG
     Route: 050
  10. SCOPOLAMINE [Concomitant]

REACTIONS (3)
  - DRUG INTERACTION [None]
  - ANTICONVULSANT DRUG LEVEL DECREASED [None]
  - ANTICONVULSANT DRUG LEVEL INCREASED [None]
